FAERS Safety Report 9844451 (Version 3)
Quarter: 2014Q1

REPORT INFORMATION
  Report Type: Spontaneous
  Country: DE (occurrence: None)
  Receive Date: 20140123
  Receipt Date: 20140318
  Transmission Date: 20141002
  Serious: Yes (Other)
  Sender: FDA-Public Use
  Company Number: VAL_02938_2014

PATIENT
  Sex: Female

DRUGS (4)
  1. METOPROLOL [Suspect]
     Indication: HYPERTENSION
     Dosage: 100 MG, DF
     Dates: end: 20131208
  2. GALVUS [Suspect]
     Indication: DIABETES MELLITUS
     Dosage: 2 DF?PER DAY
     Dates: start: 201312, end: 20131208
  3. METFORMIN [Suspect]
     Indication: DIABETES MELLITUS
     Dates: start: 201310, end: 20131208
  4. CALCIUM (CALCIUM) [Suspect]
     Indication: THYROID DISORDER

REACTIONS (6)
  - Drug hypersensitivity [None]
  - Stress [None]
  - Pruritus [None]
  - Scratch [None]
  - Local swelling [None]
  - Skin test positive [None]
